FAERS Safety Report 6911904-X (Version None)
Quarter: 2010Q3

REPORT INFORMATION
  Report Type: 
  Country: None (occurrence: None)
  Receive Date: 20100806
  Receipt Date: 20071003
  Transmission Date: 20110219
  Serious: No
  Sender: FDA-Public Use
  Company Number: US-PFIZER INC-2007084123

PATIENT
  Sex: Female
  Weight: 90 kg

DRUGS (1)
  1. GLUCOTROL XL [Suspect]
     Indication: DIABETES MELLITUS
     Dates: start: 19970101

REACTIONS (3)
  - CHEST DISCOMFORT [None]
  - HEAD DISCOMFORT [None]
  - HYPOAESTHESIA [None]
